FAERS Safety Report 8290828-2 (Version None)
Quarter: 2012Q2

REPORT INFORMATION
  Report Type: 
  Country: None (occurrence: None)
  Receive Date: 20120417
  Receipt Date: 20120216
  Transmission Date: 20120825
  Serious: No
  Sender: FDA-Public Use
  Company Number: US-BRISTOL-MYERS SQUIBB COMPANY-16376949

PATIENT
  Age: 49 Year
  Sex: Female

DRUGS (2)
  1. HYDREA [Suspect]
     Indication: CHRONIC MYELOID LEUKAEMIA
     Dates: start: 20111013
  2. SPRYCEL [Suspect]
     Indication: CHRONIC MYELOID LEUKAEMIA
     Dosage: ADJUSTMENT DOSE:100MG
     Route: 048
     Dates: start: 20111013

REACTIONS (2)
  - THROMBOCYTOPENIA [None]
  - NEUTROPENIA [None]
